FAERS Safety Report 5073320-8 (Version None)
Quarter: 2006Q3

REPORT INFORMATION
  Report Type: 
  Country: None (occurrence: None)
  Receive Date: 20060706
  Receipt Date: 20060327
  Transmission Date: 20061208
  Serious: No
  Sender: FDA-Public Use
  Company Number: 200611875BWH

PATIENT
  Age: 59 Year
  Sex: Male

DRUGS (3)
  1. LEVITRA [Suspect]
     Indication: ERECTILE DYSFUNCTION
     Dosage: 20  MG, ONCE, ORAL
     Route: 048
     Dates: start: 20060101
  2. CAVERJECT [Concomitant]
  3. INSULIN [Concomitant]

REACTIONS (2)
  - ERECTILE DYSFUNCTION [None]
  - FLUSHING [None]
